FAERS Safety Report 5690132-2 (Version None)
Quarter: 2008Q2

REPORT INFORMATION
  Report Type: 
  Country: None (occurrence: None)
  Receive Date: 20080401
  Receipt Date: 20080401
  Transmission Date: 20081010
  Serious: Yes (Other)
  Sender: FDA-Public Use
  Company Number: None

PATIENT
  Age: 86 Year
  Sex: Female
  Weight: 55.3 kg

DRUGS (5)
  1. HEPARIN SODIUM [Suspect]
     Indication: ASPARTATE AMINOTRANSFERASE INCREASED
     Dosage: 5,000 UNITS ONE TIME IV BOLUS
     Route: 040
     Dates: start: 20080330, end: 20080330
  2. HEPARIN SODIUM [Suspect]
     Indication: CHEST PAIN
     Dosage: 5,000 UNITS ONE TIME IV BOLUS
     Route: 040
     Dates: start: 20080330, end: 20080330
  3. HEPARIN SODIUM [Suspect]
     Indication: TROPONIN I INCREASED
     Dosage: 5,000 UNITS ONE TIME IV BOLUS
     Route: 040
     Dates: start: 20080330, end: 20080330
  4. HEPARIN SODIUM 25,000 UNITS IN DEXTROSE 5% IN PLASTIC CONTAINER [Suspect]
     Dosage: 600 UNITS/HR CONTINUOUS DRIP IV DRIP
     Route: 041
  5. FUROSEMIDE [Concomitant]

REACTIONS (5)
  - HYPERSENSITIVITY [None]
  - HYPOTENSION [None]
  - INJECTION SITE PAIN [None]
  - PETECHIAE [None]
  - PHARMACEUTICAL PRODUCT COMPLAINT [None]
